FAERS Safety Report 9685059 (Version 2)
Quarter: 2013Q4

REPORT INFORMATION
  Report Type: Spontaneous
  Country: DE (occurrence: DE)
  Receive Date: 20131113
  Receipt Date: 20131113
  Transmission Date: 20140711
  Serious: Yes (Life-Threatening, Hospitalization, Other)
  Sender: FDA-Public Use
  Company Number: DE-JNJFOC-20130713139

PATIENT
  Sex: Female
  Weight: 38 kg

DRUGS (4)
  1. XARELTO [Suspect]
     Indication: THROMBOSIS PROPHYLAXIS
     Route: 048
     Dates: start: 20120110
  2. XARELTO [Suspect]
     Indication: THROMBOSIS PROPHYLAXIS
     Route: 048
  3. XARELTO [Suspect]
     Indication: DEEP VEIN THROMBOSIS
     Route: 048
     Dates: start: 20120110
  4. XARELTO [Suspect]
     Indication: DEEP VEIN THROMBOSIS
     Route: 048

REACTIONS (8)
  - Haemorrhage [Recovering/Resolving]
  - Haemarthrosis [Recovered/Resolved with Sequelae]
  - Haemorrhage [Unknown]
  - Haematoma [Unknown]
  - Upper limb fracture [Unknown]
  - Empyema [Unknown]
  - Haemorrhage [Unknown]
  - Fall [Unknown]
